FAERS Safety Report 25165859 (Version 1)
Quarter: 2025Q2

REPORT INFORMATION
  Report Type: Spontaneous
  Country: US (occurrence: US)
  Receive Date: 20250407
  Receipt Date: 20250407
  Transmission Date: 20250716
  Serious: No
  Sender: SANDOZ
  Company Number: US-SANDOZ-SDZ2025US018653

PATIENT
  Sex: Female

DRUGS (2)
  1. ALBUTEROL SULFATE [Suspect]
     Active Substance: ALBUTEROL SULFATE
     Indication: Product used for unknown indication
     Route: 065
  2. PROVENTIL HFA [Suspect]
     Active Substance: ALBUTEROL SULFATE
     Indication: Product used for unknown indication
     Route: 065

REACTIONS (2)
  - Wrong technique in product usage process [Unknown]
  - Device delivery system issue [Unknown]
